FAERS Safety Report 17463218 (Version 2)
Quarter: 2020Q3

REPORT INFORMATION
  Report Type: Spontaneous
  Country: US (occurrence: US)
  Receive Date: 20200226
  Receipt Date: 20200827
  Transmission Date: 20201102
  Serious: No
  Sender: FDA-Public Use
  Company Number: US-AMGEN-USASP2020030685

PATIENT
  Age: 75 Year
  Sex: Female

DRUGS (2)
  1. KYPROLIS [Suspect]
     Active Substance: CARFILZOMIB
     Indication: PLASMA CELL MYELOMA
     Dosage: 20 MILLIGRAM/SQ. METER
     Route: 065
  2. KYPROLIS [Suspect]
     Active Substance: CARFILZOMIB
     Dosage: 56 MILLIGRAM/SQ. METER  (119.28 MILLIGRAM)/ (DOSE WAS ESCELATED ON DAY 15 OF CYCLE 1)
     Route: 065

REACTIONS (2)
  - Off label use [Unknown]
  - Infusion site pain [Not Recovered/Not Resolved]
